FAERS Safety Report 15306841 (Version 1)
Quarter: 2018Q3

REPORT INFORMATION
  Report Type: Spontaneous
  Country: US (occurrence: US)
  Receive Date: 20180822
  Receipt Date: 20180822
  Transmission Date: 20181010
  Serious: Yes (Life-Threatening, Other)
  Sender: FDA-Public Use
  Company Number: US-PFIZER INC-2018335416

PATIENT
  Age: 4 Year
  Sex: Female
  Weight: 21 kg

DRUGS (5)
  1. SODIUM BICARBONATE. [Suspect]
     Active Substance: SODIUM BICARBONATE
     Dosage: 25 MEQ, UNK (BOLUS)
     Route: 042
  2. CALCIUM GLUCONATE. [Suspect]
     Active Substance: CALCIUM GLUCONATE
     Dosage: 1.6 G, UNK (BOLUS)
     Route: 042
  3. CALCIUM GLUCONATE. [Suspect]
     Active Substance: CALCIUM GLUCONATE
     Dosage: 1.6 G, UNK
     Route: 042
  4. NORMAL SALINE [Concomitant]
     Active Substance: SODIUM CHLORIDE
     Indication: HYPOTENSION
     Dosage: UNK
     Route: 042
  5. CALCIUM GLUCONATE. [Suspect]
     Active Substance: CALCIUM GLUCONATE
     Dosage: 400 MG, (INFUSION OF 400MG PER HOUR)
     Route: 042

REACTIONS (4)
  - Cardiac arrest [Recovered/Resolved]
  - Hypophosphataemia [Recovered/Resolved]
  - Sinus tachycardia [Recovered/Resolved]
  - Ventricular fibrillation [Recovered/Resolved]
